FAERS Safety Report 15000485 (Version 5)
Quarter: 2020Q1

REPORT INFORMATION
  Report Type: Report from Study
  Country: BG (occurrence: BG)
  Receive Date: 20180612
  Receipt Date: 20200320
  Transmission Date: 20200409
  Serious: Yes (Hospitalization)
  Sender: FDA-Public Use
  Company Number: BG-009507513-1802BGR008237

PATIENT
  Age: 77 Year
  Sex: Female
  Weight: 65.25 kg

DRUGS (8)
  1. CO AMLESSA [Concomitant]
     Indication: HYPERTENSION
     Dosage: 1 TABLET, QD
     Route: 048
     Dates: start: 20160701, end: 20180327
  2. HUMALOG [Concomitant]
     Active Substance: INSULIN LISPRO
     Indication: DIABETES MELLITUS
     Dosage: 8 INTERNATIONAL UNIT, QD
     Route: 003
     Dates: start: 20170324, end: 20180331
  3. METFODIAB [Concomitant]
     Indication: DIABETES MELLITUS
     Dosage: 850 MG, TID (ALSO REPORTED AS 2,125 MG)
     Route: 048
     Dates: start: 20170324, end: 20180331
  4. LANTUS [Concomitant]
     Active Substance: INSULIN GLARGINE
     Indication: DIABETES MELLITUS
     Dosage: 14 INTERNATIONAL UNIT, QD
     Route: 003
     Dates: start: 20170324, end: 20180331
  5. PHYSIOTENS [Concomitant]
     Active Substance: MOXONIDINE
     Indication: HYPERTENSION
     Dosage: 0.4 MILLIGRAM, QD
     Route: 048
     Dates: start: 20160701
  6. ASPIRIN. [Concomitant]
     Active Substance: ASPIRIN
     Indication: MYOCARDIAL ISCHAEMIA
     Dosage: 75 MILLIGRAM, QD
     Route: 048
     Dates: start: 201506
  7. AMARYL [Concomitant]
     Active Substance: GLIMEPIRIDE
     Indication: DIABETES MELLITUS
     Dosage: 2 MG, QD
     Route: 048
     Dates: start: 20170324, end: 201804
  8. ERTUGLIFLOZIN [Suspect]
     Active Substance: ERTUGLIFLOZIN
     Indication: TYPE 2 DIABETES MELLITUS
     Dosage: 5 MILLIGRAM, QD
     Route: 048
     Dates: start: 20161012, end: 20180327

REACTIONS (2)
  - Diabetic metabolic decompensation [Recovered/Resolved]
  - Intervertebral disc protrusion [Recovered/Resolved with Sequelae]

NARRATIVE: CASE EVENT DATE: 20180101
